FAERS Safety Report 20225485 (Version 1)
Quarter: 2021Q4

REPORT INFORMATION
  Report Type: Spontaneous
  Country: US (occurrence: US)
  Receive Date: 20211224
  Receipt Date: 20211224
  Transmission Date: 20220304
  Serious: Yes (Hospitalization, Other)
  Sender: FDA-Public Use
  Company Number: US-009507513-2006USA005768

PATIENT
  Age: 40 Year
  Sex: Female

DRUGS (18)
  1. COZAAR [Suspect]
     Active Substance: LOSARTAN POTASSIUM
     Indication: Hypertension
     Dosage: 100 MILLIGRAM, DAILY ORALLY
     Route: 048
     Dates: start: 20181122
  2. PREVNAR 13 [Suspect]
     Active Substance: PNEUMOCOCCAL 13-VALENT CONJUGATE VACCINE
     Dosage: 0.5 MILLILITER,LEFT ARM
     Route: 030
     Dates: start: 20190709
  3. PREVNAR 13 [Suspect]
     Active Substance: PNEUMOCOCCAL 13-VALENT CONJUGATE VACCINE
     Dosage: 0.5 MILLILITRE,RIGHT ARM
     Route: 030
     Dates: start: 20190808
  4. PREVNAR 13 [Suspect]
     Active Substance: PNEUMOCOCCAL 13-VALENT CONJUGATE VACCINE
     Dosage: 0.5 MILLILITER,LEFT ARM (THIRD DOSE)
     Route: 030
     Dates: start: 20190912
  5. COREG [Suspect]
     Active Substance: CARVEDILOL
     Indication: Hypertension
     Dosage: 6.25 MILLIGRAM, BID
     Route: 048
     Dates: start: 20200221, end: 20200604
  6. CETIRIZINE HYDROCHLORIDE [Concomitant]
     Active Substance: CETIRIZINE HYDROCHLORIDE
     Indication: Upper-airway cough syndrome
     Dosage: 10 MILLIGRAM, QD
     Route: 048
     Dates: start: 20190419
  7. DASATINIB [Concomitant]
     Active Substance: DASATINIB
     Indication: Chemotherapy
     Dosage: 100 MILLIGRAM, QD
     Route: 048
     Dates: start: 20190624
  8. FAMOTIDINE [Concomitant]
     Active Substance: FAMOTIDINE
     Indication: Nausea
     Dosage: 20 MILLIGRAM, BID
     Route: 048
     Dates: start: 20190322
  9. OLANZAPINE [Concomitant]
     Active Substance: OLANZAPINE
     Indication: Nausea
     Dosage: 10 MILLIGRAM, QD
     Route: 048
     Dates: start: 20190224
  10. ONDANSETRON HYDROCHLORIDE [Concomitant]
     Active Substance: ONDANSETRON HYDROCHLORIDE
     Indication: Nausea
     Dosage: 8 MILLIGRAM, PRN
     Route: 048
     Dates: start: 20190322
  11. PREGABALIN [Concomitant]
     Active Substance: PREGABALIN
     Indication: Neuropathy peripheral
     Dosage: 75 MILLIGRAM, BID
     Route: 048
     Dates: start: 20181122
  12. VALACYCLOVIR HYDROCHLORIDE [Concomitant]
     Active Substance: VALACYCLOVIR HYDROCHLORIDE
     Indication: Prophylaxis
     Dosage: 500 MILLIGRAM, QD
     Route: 048
     Dates: start: 20190323
  13. SODIUM CHLORIDE [Concomitant]
     Active Substance: SODIUM CHLORIDE
     Indication: Sinus congestion
     Dosage: TOTAL DAILY DOSE: 0.65%
     Route: 045
     Dates: start: 20191211
  14. REFRESH CLASSIC LUBRICANT EYE DROPS [Concomitant]
     Indication: Dry eye
     Dosage: 1 APPLICATION DAILY, PRN; FORMULATION: SOLUTION
     Route: 047
     Dates: start: 20191211
  15. FLONASE [Concomitant]
     Active Substance: FLUTICASONE PROPIONATE
     Indication: Sinus disorder
     Dosage: TOTAL DAILY DOSE: 1 SPRAY
     Route: 045
     Dates: start: 20191211
  16. NOXAFIL [Concomitant]
     Active Substance: POSACONAZOLE
     Indication: Prophylaxis
     Dosage: 300 MILLIGRAM, TID
     Route: 048
     Dates: start: 20191212
  17. AZITHROMYCIN [Concomitant]
     Active Substance: AZITHROMYCIN
     Indication: Prophylaxis
     Dosage: 250 MILLIGRAM, ONCE
     Route: 048
     Dates: start: 20191211
  18. NILOTINIB [Concomitant]
     Active Substance: NILOTINIB
     Indication: Chemotherapy
     Dosage: 150 MILLIGRAM, QD
     Route: 048
     Dates: start: 20200127

REACTIONS (4)
  - Hypotension [Recovered/Resolved]
  - Acute lymphocytic leukaemia [Unknown]
  - Sinusitis fungal [Unknown]
  - Stem cell transplant [Unknown]

NARRATIVE: CASE EVENT DATE: 20190301
